FAERS Safety Report 6538363-3 (Version None)
Quarter: 2010Q1

REPORT INFORMATION
  Report Type: 
  Country: None (occurrence: None)
  Receive Date: 20100110
  Receipt Date: 20091224
  Transmission Date: 20100710
  Serious: Yes (Hospitalization)
  Sender: FDA-Public Use
  Company Number: 2009SA011535

PATIENT
  Age: 78 Year
  Sex: Male

DRUGS (7)
  1. FLUDARA [Suspect]
     Indication: FOLLICLE CENTRE LYMPHOMA, FOLLICULAR GRADE I, II, III STAGE IV
     Dosage: 60 MILLIGRAM(S); DAILY; ORAL
     Route: 048
     Dates: start: 20090911, end: 20090915
  2. CYCLOPHOSPHAMIDE [Concomitant]
  3. DOXORUBICIN HCL [Concomitant]
  4. VINCRISTINE [Concomitant]
  5. PREDNISOLONE [Concomitant]
  6. RITUXIMAB [Concomitant]
  7. DIFLUCAN [Concomitant]

REACTIONS (2)
  - DISSEMINATED INTRAVASCULAR COAGULATION [None]
  - PNEUMONIA [None]
